FAERS Safety Report 7860924-X (Version None)
Quarter: 2011Q4

REPORT INFORMATION
  Report Type: 
  Country: None (occurrence: None)
  Receive Date: 20111026
  Receipt Date: 20111014
  Transmission Date: 20120403
  Serious: Yes (Other)
  Sender: FDA-Public Use
  Company Number: 2011SP048899

PATIENT
  Sex: Female

DRUGS (3)
  1. VICTRELIS [Suspect]
     Indication: HEPATITIS C
     Dates: start: 20110723
  2. RIBAVIRIN [Suspect]
     Indication: HEPATITIS C
     Dates: start: 20110624
  3. PEG-INTRON [Suspect]
     Indication: HEPATITIS C
     Dates: start: 20110624

REACTIONS (5)
  - DYSPNOEA [None]
  - NAUSEA [None]
  - ANAEMIA [None]
  - SWOLLEN TONGUE [None]
  - VOMITING [None]
